FAERS Safety Report 4366886-4 (Version None)
Quarter: 2004Q2

REPORT INFORMATION
  Report Type: 
  Country: None (occurrence: None)
  Receive Date: 20040524
  Receipt Date: 20040506
  Transmission Date: 20050107
  Serious: Yes (Hospitalization)
  Sender: FDA-Public Use
  Company Number: EM2004-0238

PATIENT
  Age: 43 Year
  Sex: Male

DRUGS (1)
  1. PROLEUKIN [Suspect]
     Indication: RENAL CELL CARCINOMA STAGE UNSPECIFIED
     Dosage: HIGH DOSE, INTRAVENOUS
     Route: 042
     Dates: start: 20040401, end: 20040423

REACTIONS (9)
  - ANOREXIA [None]
  - BLOOD CREATININE INCREASED [None]
  - DIZZINESS [None]
  - FLUID IMBALANCE [None]
  - HEART RATE INCREASED [None]
  - HYPERTHYROIDISM [None]
  - MALAISE [None]
  - SINUS ARREST [None]
  - WEIGHT DECREASED [None]
